FAERS Safety Report 11342208 (Version 1)
Quarter: 2015Q3

REPORT INFORMATION
  Report Type: Spontaneous
  Country: US (occurrence: US)
  Receive Date: 20150805
  Receipt Date: 20150805
  Transmission Date: 20151125
  Serious: No
  Sender: FDA-Public Use
  Company Number: US-ASTRAZENECA-2015SE73516

PATIENT
  Age: 895 Month
  Sex: Male
  Weight: 131.5 kg

DRUGS (12)
  1. LOSARTAN. [Concomitant]
     Active Substance: LOSARTAN
  2. ALLOPURINOL. [Concomitant]
     Active Substance: ALLOPURINOL
  3. BYDUREON [Suspect]
     Active Substance: EXENATIDE
     Indication: TYPE 2 DIABETES MELLITUS
     Route: 065
     Dates: end: 201507
  4. BYETTA [Suspect]
     Active Substance: EXENATIDE
     Indication: TYPE 2 DIABETES MELLITUS
     Route: 058
     Dates: start: 201507
  5. HUMALOG [Concomitant]
     Active Substance: INSULIN LISPRO
     Dosage: 28; BEFORE MEALS
  6. ATENOLOL. [Concomitant]
     Active Substance: ATENOLOL
  7. LEVEMIR [Concomitant]
     Active Substance: INSULIN DETEMIR
  8. SIMVASTATIN. [Concomitant]
     Active Substance: SIMVASTATIN
  9. VITAMIN D [Concomitant]
     Active Substance: CHOLECALCIFEROL
  10. CALCITRIOL. [Concomitant]
     Active Substance: CALCITRIOL
  11. FAMOTIDINE. [Concomitant]
     Active Substance: FAMOTIDINE
  12. GLIMEPIRIDE. [Concomitant]
     Active Substance: GLIMEPIRIDE

REACTIONS (4)
  - Diarrhoea [Recovered/Resolved]
  - Blood glucose decreased [Unknown]
  - Expired product administered [Unknown]
  - Drug dose omission [Unknown]

NARRATIVE: CASE EVENT DATE: 201507
